FAERS Safety Report 5030594-7 (Version None)
Quarter: 2006Q2

REPORT INFORMATION
  Report Type: 
  Country: None (occurrence: None)
  Receive Date: 20060615
  Receipt Date: 20060602
  Transmission Date: 20061013
  Serious: Yes (Hospitalization, Other)
  Sender: FDA-Public Use
  Company Number: 2006057342

PATIENT
  Age: 64 Year
  Sex: Male

DRUGS (8)
  1. CELEBREX [Suspect]
     Indication: ARTHRITIS
     Dosage: 400 MG (200 MG 2 IN 1 D)
     Dates: start: 19990101, end: 20040801
  2. ASPIRIN [Concomitant]
  3. ZOCOR [Concomitant]
  4. ANTI-DIABETICS (ANTI-DIABETICS) [Concomitant]
  5. GLUCOPHAGE [Concomitant]
  6. GLYBURIDE [Concomitant]
  7. LOTREL [Concomitant]
  8. LOPRESSOR [Concomitant]

REACTIONS (11)
  - ACCELERATED HYPERTENSION [None]
  - ASTHENIA [None]
  - BALANCE DISORDER [None]
  - CAROTID ARTERY OCCLUSION [None]
  - CORONARY ARTERY OCCLUSION [None]
  - GRANULOMA [None]
  - MYOCARDIAL INFARCTION [None]
  - NEPHROLITHIASIS [None]
  - PLEURAL EFFUSION [None]
  - POST PROCEDURAL COMPLICATION [None]
  - SINUS BRADYCARDIA [None]
